FAERS Safety Report 4305331-1 (Version None)
Quarter: 2004Q1

REPORT INFORMATION
  Report Type: 
  Country: None (occurrence: None)
  Receive Date: 20040226
  Receipt Date: 20030609
  Transmission Date: 20041129
  Serious: No
  Sender: FDA-Public Use
  Company Number: US-BRISTOL-MYERS SQUIBB COMPANY-12295788

PATIENT
  Age: 65 Year
  Sex: Male

DRUGS (9)
  1. TAXOL [Suspect]
     Indication: NEOPLASM MALIGNANT
  2. DECADRON [Concomitant]
     Indication: PREMEDICATION
     Dosage: 12 + 6 HOURS PRIOR TO INFUSION OF TAXOL
  3. TAGAMET [Concomitant]
     Indication: PREMEDICATION
  4. BENADRYL [Concomitant]
     Indication: PREMEDICATION
  5. ANZEMET [Concomitant]
     Indication: PREMEDICATION
     Route: 042
  6. MULTI-VITAMIN [Concomitant]
     Route: 048
  7. VITAMIN C [Concomitant]
     Route: 048
  8. SALAGEN [Concomitant]
     Route: 048
  9. LEVAQUIN [Concomitant]
     Route: 048

REACTIONS (5)
  - ABDOMINAL DISCOMFORT [None]
  - CHEST DISCOMFORT [None]
  - DIZZINESS [None]
  - THROAT TIGHTNESS [None]
  - VISION BLURRED [None]
